FAERS Safety Report 12675542 (Version 1)
Quarter: 2016Q3

REPORT INFORMATION
  Report Type: Spontaneous
  Country: US (occurrence: US)
  Receive Date: 20160823
  Receipt Date: 20160823
  Transmission Date: 20161109
  Serious: Yes (Hospitalization)
  Sender: FDA-Public Use
  Company Number: US-SUN PHARMACEUTICAL INDUSTRIES LTD-2016US-122179

PATIENT
  Age: 55 Year
  Sex: Male

DRUGS (2)
  1. VENLAFAXINE [Suspect]
     Active Substance: VENLAFAXINE HYDROCHLORIDE
     Indication: SUICIDE ATTEMPT
     Dosage: 6000 MG, UNK
     Route: 048
  2. VENLAFAXINE [Suspect]
     Active Substance: VENLAFAXINE HYDROCHLORIDE
     Dosage: AROUND 80 EXTENDED-RELEASE CAPSULES OF VENLAFAXINE, THE TOTAL DOSE BEING APPROXIMATELY 6000 MG
     Route: 048

REACTIONS (2)
  - Intentional overdose [Recovered/Resolved]
  - Lactic acidosis [Recovered/Resolved]
